FAERS Safety Report 7039957-1 (Version None)
Quarter: 2010Q4

REPORT INFORMATION
  Report Type: 
  Country: None (occurrence: None)
  Receive Date: 20101012
  Receipt Date: 20101004
  Transmission Date: 20110411
  Serious: Yes (Hospitalization)
  Sender: FDA-Public Use
  Company Number: ES-BAXTER-2010BH025007

PATIENT
  Age: 23 Year
  Sex: Male

DRUGS (3)
  1. EXTRANEAL [Suspect]
     Indication: PERITONEAL DIALYSIS
     Route: 033
     Dates: start: 20061218
  2. EXTRANEAL [Suspect]
     Route: 033
     Dates: start: 20061218
  3. PHYSIOSOL IN PLASTIC CONTAINER [Concomitant]
     Indication: PERITONEAL DIALYSIS
     Route: 033
     Dates: start: 20061218

REACTIONS (7)
  - ABDOMINAL PAIN [None]
  - EOSINOPHILIA [None]
  - HYPOTENSION [None]
  - LEUKOPENIA [None]
  - NAUSEA [None]
  - PERITONEAL CLOUDY EFFLUENT [None]
  - PYREXIA [None]
